FAERS Safety Report 9345275 (Version 2)
Quarter: 2013Q3

REPORT INFORMATION
  Report Type: Spontaneous
  Country: DE (occurrence: DE)
  Receive Date: 20130613
  Receipt Date: 20130801
  Transmission Date: 20140515
  Serious: Yes (Other)
  Sender: FDA-Public Use
  Company Number: DE-ROCHE-1236046

PATIENT
  Age: 71 Year
  Sex: Male

DRUGS (5)
  1. MABTHERA [Suspect]
     Indication: CHRONIC LYMPHOCYTIC LEUKAEMIA
     Route: 042
     Dates: start: 20110816, end: 20110816
  2. CLEMASTIN [Concomitant]
     Route: 042
     Dates: start: 20110816, end: 20110816
  3. PARACETAMOL [Concomitant]
     Route: 048
     Dates: start: 20110816, end: 20110816
  4. COTRIM [Concomitant]
     Route: 065
     Dates: start: 20110725, end: 20121122
  5. FOLSAN [Concomitant]
     Route: 065
     Dates: start: 20110725, end: 20121122

REACTIONS (5)
  - Haemolysis [Recovered/Resolved]
  - Chills [Recovered/Resolved]
  - Pyrexia [Recovered/Resolved]
  - Nausea [Recovered/Resolved]
  - Diarrhoea [Recovered/Resolved]
